FAERS Safety Report 16562492 (Version 1)
Quarter: 2019Q3

REPORT INFORMATION
  Report Type: Spontaneous
  Country: GB (occurrence: GB)
  Receive Date: 20190711
  Receipt Date: 20190711
  Transmission Date: 20191004
  Serious: Yes (Other)
  Sender: FDA-Public Use
  Company Number: GB-TEVA-2019-GB-1074613

PATIENT
  Age: 78 Year
  Sex: Female
  Weight: 68 kg

DRUGS (18)
  1. ADCAL [Concomitant]
     Dosage: 4 DOSAGE FORM FOR EVERY 1 DAYS
     Dates: start: 20190228
  2. AMITRIPTYLINE HYDROCHLORIDE. [Concomitant]
     Active Substance: AMITRIPTYLINE HYDROCHLORIDE
     Dosage: 1-2 AT NIGHT
     Dates: start: 20181011
  3. ACARBOSE. [Concomitant]
     Active Substance: ACARBOSE
     Dosage: 3 DOSAGE FORM FOR EVERY1 DAYS
     Dates: start: 20181011
  4. TRAMADOL. [Concomitant]
     Active Substance: TRAMADOL
     Dosage: 4 DOSAGE FORM FOR EVERY 1 DAY
     Dates: start: 20180216
  5. ACETYLSALICYLIC ACID [Concomitant]
     Active Substance: ASPIRIN
     Dosage: 1 DOSAGE FORM FOR EVERY 1 DAYS
     Dates: start: 20181011
  6. LANSOPRAZOLE. [Concomitant]
     Active Substance: LANSOPRAZOLE
     Dosage: 1 DOSAGE FORM FOR EVERY 1 DAYS
     Dates: start: 20181011
  7. CANESTEN [Concomitant]
     Active Substance: CLOTRIMAZOLE
     Dosage: AS DIRECTED
     Dates: start: 20181011, end: 20190425
  8. DICLOFENAC DIETHYLAMINE [Concomitant]
     Active Substance: DICLOFENAC DIETHYLAMINE
     Dosage: 3 DOSAGEFORM FOR EVERY 1 DAYS
     Dates: start: 20181011
  9. TIMODINE [Concomitant]
     Dosage: APPLY
     Dates: start: 20181011
  10. LOSARTAN. [Concomitant]
     Active Substance: LOSARTAN
     Dosage: 1 DOSAGE FORM FOR EVERY 1 DAY
     Dates: start: 20181011
  11. ESTRIOL [Concomitant]
     Active Substance: ESTRIOL
     Dosage: APPLY
     Dates: start: 20181011
  12. ATORVASTATIN [Concomitant]
     Active Substance: ATORVASTATIN
     Dosage: 1 DOSAGE FORM FOR EVERY 1 DAYS
     Dates: start: 20181011
  13. BISOPROLOL [Concomitant]
     Active Substance: BISOPROLOL
     Dosage: 1 DOSAGE FORM FOR EVERY 1 DAYS
     Dates: start: 20181011
  14. MYDRILATE [Concomitant]
     Active Substance: CYCLOPENTOLATE HYDROCHLORIDE
     Dosage: 1 GTT
     Dates: start: 20181011
  15. CLARITHROMYCIN. [Suspect]
     Active Substance: CLARITHROMYCIN
     Dosage: 500MILLIGRAM
     Dates: start: 20190311
  16. NOVOMIX [Concomitant]
     Active Substance: INSULIN ASPART
     Dosage: USE AS DIRECTED
     Dates: start: 20181011
  17. METFORMIN [Concomitant]
     Active Substance: METFORMIN HYDROCHLORIDE
     Dosage: 4 DOSAGE FORM FOR EVERY 1 DAYS
     Dates: start: 20181011
  18. CANDESARTAN. [Concomitant]
     Active Substance: CANDESARTAN
     Dosage: 1 DOSAGE FORM FOR EVERY 1 DAYS
     Dates: start: 20181011

REACTIONS (1)
  - Urticaria [Recovered/Resolved]

NARRATIVE: CASE EVENT DATE: 20190419
